FAERS Safety Report 5937969-X (Version None)
Quarter: 2008Q4

REPORT INFORMATION
  Report Type: 
  Country: None (occurrence: None)
  Receive Date: 20081031
  Receipt Date: 20081020
  Transmission Date: 20090506
  Serious: Yes (Other)
  Sender: FDA-Public Use
  Company Number: US-PFIZER INC-2008068062

PATIENT
  Sex: Male
  Weight: 129.1 kg

DRUGS (9)
  1. SUTENT [Suspect]
     Indication: RENAL CELL CARCINOMA
     Dates: start: 20071201
  2. LISINOPRIL [Concomitant]
  3. ATENOLOL [Concomitant]
  4. ACTOS [Concomitant]
  5. PRANDIN [Concomitant]
  6. ROBAXIN [Concomitant]
  7. MORPHINE SULFATE INJ [Concomitant]
  8. HYDROCODONE BITARTRATE [Concomitant]
  9. DEXAMETHASONE [Concomitant]
     Indication: SPINAL COLUMN STENOSIS
     Dosage: DAILY DOSE:4MG

REACTIONS (6)
  - CONTUSION [None]
  - FATIGUE [None]
  - HAEMORRHAGE [None]
  - LUNG NEOPLASM [None]
  - LYMPHOEDEMA [None]
  - MASS [None]
